FAERS Safety Report 7367744-3 (Version None)
Quarter: 2011Q1

REPORT INFORMATION
  Report Type: 
  Country: None (occurrence: None)
  Receive Date: 20110322
  Receipt Date: 20110308
  Transmission Date: 20110831
  Serious: Yes (Hospitalization, Other)
  Sender: FDA-Public Use
  Company Number: US-JNJFOC-20060503097

PATIENT
  Sex: Female
  Weight: 31 kg

DRUGS (5)
  1. INFLIXIMAB [Suspect]
     Dosage: 3 DOSES TOTAL
  2. INFLIXIMAB [Suspect]
     Indication: CROHN'S DISEASE
  3. PREDNISONE [Concomitant]
  4. AZATHIOPRINE [Concomitant]
  5. INFLIXIMAB [Suspect]

REACTIONS (2)
  - SERUM SICKNESS [None]
  - ABSCESS [None]
